FAERS Safety Report 11117096 (Version 5)
Quarter: 2015Q3

REPORT INFORMATION
  Report Type: Spontaneous
  Country: US (occurrence: US)
  Receive Date: 20150515
  Receipt Date: 20150715
  Transmission Date: 20151125
  Serious: Yes (Other)
  Sender: FDA-Public Use
  Company Number: US-PFIZER INC-2015160056

PATIENT
  Age: 59 Year
  Sex: Female
  Weight: 79 kg

DRUGS (26)
  1. TRAMADOL HCL [Concomitant]
     Active Substance: TRAMADOL HYDROCHLORIDE
     Indication: FIBROMYALGIA
     Dosage: 50MG EVERY 6HRS AS NEEDED
     Dates: start: 20150403
  2. RITUXAN [Concomitant]
     Active Substance: RITUXIMAB
     Indication: RHEUMATOID ARTHRITIS
     Dosage: 10 MG/ML, UNK, (1(ONE) CONCENTRATE Q 6 MOS, 2 UNSPECIFIED)
     Dates: start: 20150519
  3. CYCLOBENZAPRINE HCL [Concomitant]
     Active Substance: CYCLOBENZAPRINE HYDROCHLORIDE
     Dosage: 1 TABLET AT BEDTIME, UP TO TWICE DAILY
  4. PENTASA [Concomitant]
     Active Substance: MESALAMINE
     Dosage: 500 MG, AS NEEDED
     Route: 048
  5. BUDESONIDE. [Concomitant]
     Active Substance: BUDESONIDE
     Dosage: UNK UNK, AS NEEDED (0.5MG/2ML SUSPENSION, INHALATION)
     Route: 055
  6. LACTAID ULTRA [Concomitant]
     Dosage: 1 DF, 2X/DAY
     Route: 048
  7. SODIUM CHLORIDE. [Concomitant]
     Active Substance: SODIUM CHLORIDE
     Dosage: DAILY (1GM TABLET,6-12 GMS)
     Route: 048
  8. SUDAFED 12 HOUR [Concomitant]
     Active Substance: PSEUDOEPHEDRINE HYDROCHLORIDE
     Dosage: (STRENGTH 120MG TABLET),1-2 ORAL AS NEEDED
     Route: 048
  9. AZATHIOPRINE. [Concomitant]
     Active Substance: AZATHIOPRINE
     Indication: RHEUMATOID ARTHRITIS
     Dosage: 50 MG, 1X/DAY (Q AM)
     Route: 048
     Dates: start: 20150519
  10. TRAMADOL HCL ER [Concomitant]
     Dosage: 100 MG, DAILY
     Route: 048
  11. XELJANZ [Suspect]
     Active Substance: TOFACITINIB CITRATE
     Dosage: 5 MG, DAILY
     Dates: start: 201505, end: 20150512
  12. CLARINEX [Concomitant]
     Active Substance: DESLORATADINE
     Dosage: 5 MG, 1X/DAY
     Route: 048
  13. RESTASIS [Concomitant]
     Active Substance: CYCLOSPORINE
     Dosage: 1DF, AS NEEDED (0.05% EMULSION, 1 DROP,EVERY 12HRS )
     Route: 047
  14. SYSTANE (HYPROMELLOSE 2910 (4000 MPA.S)) [Concomitant]
     Active Substance: HYPROMELLOSE 2910 (4000 MPA.S)
     Dosage: 1 GTT, AS NEEDED
     Route: 047
  15. GENTEAL MILD [Concomitant]
     Active Substance: HYPROMELLOSE 2910 (4000 MPA.S)
     Dosage: DAILY (0.3% SOLUTION )
     Route: 047
  16. AZATHIOPRINE. [Concomitant]
     Active Substance: AZATHIOPRINE
     Dosage: 75 MG,  Q HS
     Route: 048
     Dates: start: 20150519
  17. CYCLOBENZAPRINE HCL [Concomitant]
     Active Substance: CYCLOBENZAPRINE HYDROCHLORIDE
     Dosage: 1 TABLET AT BEDTIME, UP TO TWICE DAILY
     Dates: start: 20140701
  18. KLONOPIN [Concomitant]
     Active Substance: CLONAZEPAM
     Dosage: 0.5 DF, 3X/DAY
     Route: 048
  19. PANTOPRAZOLE SODIUM. [Concomitant]
     Active Substance: PANTOPRAZOLE SODIUM
     Dosage: 40 MG, DAILY
     Route: 048
  20. VSL#3 [Concomitant]
     Active Substance: PROBIOTICS NOS
     Dosage: 1 DF, DAILY
     Route: 048
  21. XOPENEX [Concomitant]
     Active Substance: LEVALBUTEROL HYDROCHLORIDE
     Dosage: UNK, AS NEEDED, (0.63MG/3ML NEBULIZED SOLN)
     Route: 055
  22. GENTEAL GELDROPS [Concomitant]
     Dosage: 0.25-0.3% GEL DAILY BED TIME
  23. XELJANZ [Suspect]
     Active Substance: TOFACITINIB CITRATE
     Indication: RHEUMATOID ARTHRITIS
     Dosage: 5 MG, 2X/DAY
     Route: 048
     Dates: start: 20150501
  24. FLONASE [Concomitant]
     Active Substance: FLUTICASONE PROPIONATE
     Dosage: 2X/DAY
     Dates: start: 20110715
  25. VITAMIN D [Concomitant]
     Active Substance: CHOLECALCIFEROL
     Dosage: 1 DF, DAILY
     Route: 048
  26. CALCIUM ASCORBATE [Concomitant]
     Active Substance: CALCIUM ASCORBATE
     Dosage: 1200 MG, DAILY, (1/2 TSP DAILY)

REACTIONS (12)
  - Abdominal discomfort [Not Recovered/Not Resolved]
  - Vomiting [Recovered/Resolved with Sequelae]
  - Gastrointestinal disorder [Not Recovered/Not Resolved]
  - Change of bowel habit [Not Recovered/Not Resolved]
  - Flatulence [Not Recovered/Not Resolved]
  - Irritable bowel syndrome [Unknown]
  - Haematochezia [Recovered/Resolved with Sequelae]
  - Abdominal distension [Not Recovered/Not Resolved]
  - Regurgitation [Not Recovered/Not Resolved]
  - Nausea [Recovered/Resolved with Sequelae]
  - Gastric disorder [Not Recovered/Not Resolved]
  - Diarrhoea [Recovered/Resolved with Sequelae]

NARRATIVE: CASE EVENT DATE: 20150501
